FAERS Safety Report 12693696 (Version 2)
Quarter: 2016Q4

REPORT INFORMATION
  Report Type: Spontaneous
  Country: AU (occurrence: AU)
  Receive Date: 20160829
  Receipt Date: 20161011
  Transmission Date: 20170207
  Serious: Yes (Hospitalization)
  Sender: FDA-Public Use
  Company Number: AU-PFIZER INC-2016387488

PATIENT
  Sex: Female

DRUGS (15)
  1. PYRALIN EN [Suspect]
     Active Substance: SULFASALAZINE
     Indication: RHEUMATOID ARTHRITIS
     Dosage: 500 MG, 2X/DAY (MORNING AND EVENING)
     Dates: start: 201604
  2. PLAQUENIL /00072602/ [Concomitant]
     Active Substance: HYDROXYCHLOROQUINE DIPHOSPHATE
     Indication: RHEUMATOID ARTHRITIS
     Dosage: 200 MG, 2X/DAY
  3. VENTOLIN [Concomitant]
     Active Substance: ALBUTEROL SULFATE
     Indication: DYSPNOEA
     Dosage: UNK
     Route: 055
  4. ROXITHROMYCIN [Concomitant]
     Active Substance: ROXITHROMYCIN
     Dosage: UNK, DAILY (CYCLES WITH DOXYCYCLINE)
  5. SPIRIVA [Concomitant]
     Active Substance: TIOTROPIUM BROMIDE MONOHYDRATE
     Indication: DYSPNOEA
     Dosage: UNK
     Route: 055
  6. ALDACTONE [Concomitant]
     Active Substance: SPIRONOLACTONE
     Indication: CARDIAC DISORDER
     Dosage: UNK
  7. PYRALIN EN [Suspect]
     Active Substance: SULFASALAZINE
     Dosage: 2 DF, 2X/DAY (MORNING AND EVENING)
     Dates: start: 201605
  8. FRUSEMIDE /00032601/ [Concomitant]
     Active Substance: FUROSEMIDE
     Indication: CARDIAC DISORDER
     Dosage: UNK
  9. DOXYCYCLINE. [Concomitant]
     Active Substance: DOXYCYCLINE
     Dosage: UNK, DAILY (CYCLES WITH ROXITHROMYCIN)
  10. SERETIDE [Concomitant]
     Active Substance: FLUTICASONE PROPIONATE\SALMETEROL XINAFOATE
     Indication: DYSPNOEA
     Dosage: UNK
     Route: 055
  11. PYRALIN EN [Suspect]
     Active Substance: SULFASALAZINE
     Dosage: UNK
  12. CARTIA /00002701/ [Concomitant]
     Active Substance: ASPIRIN
     Dosage: UNK
  13. CALCIUM [Concomitant]
     Active Substance: CALCIUM
     Dosage: UNK, DAILY (EVERY NIGHT)
  14. PROLIA [Concomitant]
     Active Substance: DENOSUMAB
     Dosage: EVERY 6 MONTHS
  15. ASPRO /00002701/ [Concomitant]
     Active Substance: ASPIRIN
     Dosage: UNK, DAILY (MORNNG)

REACTIONS (10)
  - Malaise [Recovered/Resolved]
  - Dyspnoea [Not Recovered/Not Resolved]
  - Peripheral swelling [Not Recovered/Not Resolved]
  - Lung disorder [Unknown]
  - Oropharyngeal pain [Not Recovered/Not Resolved]
  - Varicose vein [Unknown]
  - Skin ulcer [Recovered/Resolved]
  - Localised infection [Not Recovered/Not Resolved]
  - Disease progression [Unknown]
  - Dysphonia [Not Recovered/Not Resolved]

NARRATIVE: CASE EVENT DATE: 201601
